FAERS Safety Report 10287231 (Version 1)
Quarter: 2014Q3

REPORT INFORMATION
  Report Type: Spontaneous
  Country: CA (occurrence: None)
  Receive Date: 20140707
  Receipt Date: 20140707
  Transmission Date: 20150326
  Serious: Yes (Other)
  Sender: FDA-Public Use
  Company Number: VAL_03200_2014

PATIENT

DRUGS (4)
  1. CALCITRIOL. [Suspect]
     Active Substance: CALCITRIOL
     Indication: FOETAL EXPOSURE DURING PREGNANCY
     Route: 064
  2. CALCIUM CARBONATE (CALCIUM CARBONATE) (CALCIUM CARBONATE) [Suspect]
     Active Substance: CALCIUM CARBONATE
     Indication: FOETAL EXPOSURE DURING PREGNANCY
     Route: 064
  3. FERROUS FUMARATE [Suspect]
     Active Substance: FERROUS FUMARATE
     Indication: FOETAL EXPOSURE DURING PREGNANCY
     Route: 064
  4. NIFEDIPINE (NIFEDIPINE) (NIFEDIPINE) [Concomitant]
     Active Substance: NIFEDIPINE
     Indication: EXPOSURE DURING PREGNANCY
     Route: 064

REACTIONS (3)
  - Exposure during pregnancy [None]
  - Premature baby [None]
  - Low birth weight baby [None]
